FAERS Safety Report 12981526 (Version 1)
Quarter: 2016Q4

REPORT INFORMATION
  Report Type: Spontaneous
  Country: JP (occurrence: JP)
  Receive Date: 20161129
  Receipt Date: 20161129
  Transmission Date: 20170207
  Serious: Yes (Other)
  Sender: FDA-Public Use
  Company Number: JP-SA-2016SA201822

PATIENT
  Sex: Male

DRUGS (7)
  1. UFT [Concomitant]
     Active Substance: TEGAFUR\URACIL
     Route: 065
     Dates: start: 2010, end: 2012
  2. LEVOFOLINATE [Suspect]
     Active Substance: LEVOLEUCOVORIN CALCIUM
     Indication: COLON CANCER
     Dosage: ONCE A DAY
     Route: 041
     Dates: start: 2009, end: 2010
  3. AVASTIN [Concomitant]
     Active Substance: BEVACIZUMAB
     Route: 065
     Dates: start: 2009, end: 2010
  4. CAMPTO [Suspect]
     Active Substance: IRINOTECAN
     Indication: COLON CANCER
     Dosage: ONCE A DAY
     Route: 041
     Dates: start: 2009, end: 2010
  5. UZEL [Concomitant]
     Active Substance: LEUCOVORIN CALCIUM
     Route: 065
     Dates: start: 2010, end: 2012
  6. ELPLAT [Suspect]
     Active Substance: OXALIPLATIN
     Indication: COLON CANCER
     Route: 041
     Dates: start: 2009, end: 2009
  7. 5-FU [Concomitant]
     Active Substance: FLUOROURACIL
     Route: 065
     Dates: start: 2009, end: 2009

REACTIONS (1)
  - Refractory cytopenia with unilineage dysplasia [Not Recovered/Not Resolved]

NARRATIVE: CASE EVENT DATE: 2014
